FAERS Safety Report 21985663 (Version 1)
Quarter: 2023Q1

REPORT INFORMATION
  Report Type: Spontaneous
  Country: FR (occurrence: FR)
  Receive Date: 20230213
  Receipt Date: 20230213
  Transmission Date: 20230417
  Serious: Yes (Life-Threatening, Other)
  Sender: FDA-Public Use
  Company Number: None

PATIENT
  Age: 78 Year
  Sex: Male
  Weight: 69 kg

DRUGS (2)
  1. DOXYCYCLINE [Suspect]
     Active Substance: DOXYCYCLINE
     Indication: Osteitis
     Dosage: 200 MILLIGRAM, QD
     Route: 048
     Dates: start: 20221125, end: 20230104
  2. CEPHALEXIN [Suspect]
     Active Substance: CEPHALEXIN
     Indication: Osteitis
     Dosage: 6 GRAM, QD
     Route: 048
     Dates: start: 20221125, end: 20230104

REACTIONS (2)
  - Agranulocytosis [Recovered/Resolved]
  - Neutropenia [Recovering/Resolving]

NARRATIVE: CASE EVENT DATE: 20221228
